FAERS Safety Report 9966415 (Version 1)
Quarter: 2014Q1

REPORT INFORMATION
  Report Type: Report from Study
  Country: US (occurrence: US)
  Receive Date: 20140305
  Receipt Date: 20140305
  Transmission Date: 20141002
  Serious: No
  Sender: FDA-Public Use
  Company Number: US-ABBVIE-13P-163-1121495-00

PATIENT
  Age: 24 Year
  Sex: Female

DRUGS (14)
  1. HUMIRA [Suspect]
     Indication: CROHN^S DISEASE
     Route: 058
     Dates: start: 20130517
  2. INDERAL LA [Concomitant]
     Indication: PRODUCT USED FOR UNKNOWN INDICATION
     Dosage: 160MG DAILY
  3. SINGULAIR [Concomitant]
     Indication: ASTHMA
     Dosage: 10MG DAILY
  4. DESOGEN [Concomitant]
     Indication: CONTRACEPTION
  5. DONNATAL [Concomitant]
     Indication: CROHN^S DISEASE
     Dosage: DAILY
  6. PENTASA [Concomitant]
     Indication: CROHN^S DISEASE
  7. OMEPRAZOLE [Concomitant]
     Indication: CROHN^S DISEASE
     Dosage: 40MG DAILY
  8. FLEXERIL [Concomitant]
     Indication: FIBROMYALGIA
  9. ZOFRAN [Concomitant]
     Indication: CROHN^S DISEASE
  10. ZOFRAN [Concomitant]
     Indication: MIGRAINE
  11. CYMBALTA [Concomitant]
     Indication: FIBROMYALGIA
     Dosage: 60MG DAILY
  12. MOBIC [Concomitant]
     Indication: FIBROMYALGIA
     Dosage: 15MG DAILY
  13. IMURAN [Concomitant]
     Indication: PRODUCT USED FOR UNKNOWN INDICATION
  14. ENTOCORT [Concomitant]
     Indication: PRODUCT USED FOR UNKNOWN INDICATION

REACTIONS (6)
  - Eye pain [Not Recovered/Not Resolved]
  - Sinus congestion [Not Recovered/Not Resolved]
  - Ear discomfort [Not Recovered/Not Resolved]
  - Chest discomfort [Not Recovered/Not Resolved]
  - Oropharyngeal discomfort [Not Recovered/Not Resolved]
  - Sinusitis [Not Recovered/Not Resolved]
